FAERS Safety Report 14427791 (Version 1)
Quarter: 2018Q1

REPORT INFORMATION
  Report Type: Spontaneous
  Country: IT (occurrence: IT)
  Receive Date: 20180123
  Receipt Date: 20180123
  Transmission Date: 20180509
  Serious: Yes (Other)
  Sender: FDA-Public Use
  Company Number: PHHY2017IT195327

PATIENT
  Age: 66 Year
  Sex: Male

DRUGS (4)
  1. FLUOROURACIL. [Suspect]
     Active Substance: FLUOROURACIL
     Indication: COLON CANCER
     Dosage: 1700 MG, CYCLIC
     Route: 042
     Dates: start: 20161123, end: 20170221
  2. OXALIPLATIN. [Suspect]
     Active Substance: OXALIPLATIN
     Indication: COLON CANCER
     Dosage: 1700 MG, CYCLIC
     Route: 042
     Dates: start: 20161122, end: 20170221
  3. CALCIUM FOLINATE [Suspect]
     Active Substance: LEUCOVORIN CALCIUM
     Indication: COLON CANCER
     Dosage: 1700 MG, CYCLIC
     Route: 042
     Dates: start: 20161123, end: 20170221
  4. VECTIBIX [Suspect]
     Active Substance: PANITUMUMAB
     Indication: COLON CANCER
     Dosage: 450 MG, CYCLIC
     Route: 042
     Dates: start: 20161128

REACTIONS (6)
  - Paronychia [Unknown]
  - Pyrexia [Unknown]
  - Dry skin [Unknown]
  - Erythema multiforme [Unknown]
  - Skin exfoliation [Unknown]
  - Supraventricular tachycardia [Unknown]

NARRATIVE: CASE EVENT DATE: 20170102
